FAERS Safety Report 8421076-0 (Version None)
Quarter: 2012Q2

REPORT INFORMATION
  Report Type: 
  Country: None (occurrence: None)
  Receive Date: 20120604
  Receipt Date: 20120604
  Transmission Date: 20120825
  Serious: Yes (Hospitalization)
  Sender: FDA-Public Use
  Company Number: None

PATIENT
  Age: 56 Year
  Sex: Female
  Weight: 84.8 kg

DRUGS (1)
  1. DAPTOMYCIN [Suspect]
     Indication: ENDOCARDITIS STAPHYLOCOCCAL
     Dosage: 540MG DAILY IV
     Route: 042
     Dates: start: 20120420, end: 20120506

REACTIONS (2)
  - RHABDOMYOLYSIS [None]
  - ACUTE RESPIRATORY FAILURE [None]
